FAERS Safety Report 7931641-2 (Version None)
Quarter: 2011Q4

REPORT INFORMATION
  Report Type: 
  Country: None (occurrence: None)
  Receive Date: 20111121
  Receipt Date: 20111109
  Transmission Date: 20120403
  Serious: Yes (Hospitalization, Other)
  Sender: FDA-Public Use
  Company Number: PHHY2011FR94916

PATIENT
  Sex: Male

DRUGS (14)
  1. TEGRETOL [Suspect]
     Indication: CONVULSION
     Dosage: 400 MG, DAILY
     Route: 042
     Dates: start: 20110901, end: 20111010
  2. KIVEXA [Suspect]
     Indication: HIV INFECTION
     Dates: start: 20110901
  3. LOVENOX [Concomitant]
  4. KEPPRA [Suspect]
     Indication: CONVULSION
     Dates: start: 20110901
  5. VIMPAT [Suspect]
     Indication: CONVULSION
     Dates: start: 20110901
  6. CLONAZEPAM [Concomitant]
  7. PREZISTA [Suspect]
     Indication: HIV INFECTION
     Dates: start: 20110901
  8. NICARDIPINE HCL [Concomitant]
  9. MIDAZOLAM HCL [Concomitant]
  10. ISENTRESS [Suspect]
     Indication: HIV INFECTION
     Dates: start: 20110901
  11. BACTRIM [Suspect]
     Dates: start: 20110901, end: 20111008
  12. OMEPRAZOLE [Concomitant]
  13. SUFENTA PRESERVATIVE FREE [Concomitant]
  14. NORVIR [Suspect]
     Indication: HIV INFECTION
     Dates: start: 20110901

REACTIONS (2)
  - RASH MACULO-PAPULAR [None]
  - IMMUNE RECONSTITUTION SYNDROME [None]
